FAERS Safety Report 6087072-6 (Version None)
Quarter: 2009Q1

REPORT INFORMATION
  Report Type: 
  Country: None (occurrence: None)
  Receive Date: 20090219
  Receipt Date: 20090206
  Transmission Date: 20090719
  Serious: Yes (Death)
  Sender: FDA-Public Use
  Company Number: 2009S1000058

PATIENT
  Age: 72 Year
  Sex: Male

DRUGS (2)
  1. CUBICIN [Suspect]
     Indication: STAPHYLOCOCCAL BACTERAEMIA
     Dosage: 12 MG/KG; Q48H; IV
     Route: 042
  2. VANCOMYCIN [Concomitant]

REACTIONS (10)
  - BLOOD CULTURE POSITIVE [None]
  - DRUG INEFFECTIVE [None]
  - DRUG RESISTANCE [None]
  - ENDOCARDITIS BACTERIAL [None]
  - HAEMORRHAGE INTRACRANIAL [None]
  - MENTAL STATUS CHANGES [None]
  - NERVOUS SYSTEM DISORDER [None]
  - NEUROLOGICAL DECOMPENSATION [None]
  - RENAL IMPAIRMENT [None]
  - STAPHYLOCOCCAL BACTERAEMIA [None]
